FAERS Safety Report 16706198 (Version 9)
Quarter: 2020Q4

REPORT INFORMATION
  Report Type: Spontaneous
  Country: US (occurrence: US)
  Receive Date: 20190815
  Receipt Date: 20201125
  Transmission Date: 20210113
  Serious: Yes (Death, Hospitalization, Other)
  Sender: FDA-Public Use
  Company Number: US-CATALYST PHARMACEUTICALS, INC-2019CAT00303

PATIENT
  Age: 77 Year
  Sex: Female
  Weight: 40.82 kg

DRUGS (29)
  1. ZOSYN [Suspect]
     Active Substance: PIPERACILLIN SODIUM\TAZOBACTAM SODIUM
  2. PANTOPRAZOLE [Concomitant]
     Active Substance: PANTOPRAZOLE
     Dosage: 40 MG, 1X/DAY
  3. TYLENOL [Concomitant]
     Active Substance: ACETAMINOPHEN
     Dosage: 325 MG, AS NEEDED
  4. MIRTAZAPINE. [Concomitant]
     Active Substance: MIRTAZAPINE
  5. BISACODYL EC [Concomitant]
     Active Substance: BISACODYL
     Dosage: 5 MG, AS NEEDED
  6. FIRDAPSE [Suspect]
     Active Substance: AMIFAMPRIDINE PHOSPHATE
     Indication: MYASTHENIC SYNDROME
     Dosage: 10 MG, 8X/DAY (10 MG EVERY 1 HOUR FOR 8 HOURS)
     Route: 048
     Dates: start: 20190208, end: 2019
  7. FIRDAPSE [Suspect]
     Active Substance: AMIFAMPRIDINE PHOSPHATE
     Dosage: 10 MG, 8X/DAY
     Dates: start: 2019, end: 2019
  8. MIDODRINE [Concomitant]
     Active Substance: MIDODRINE
     Dosage: 2.5 MG, 2X/DAY
  9. FIRDAPSE [Suspect]
     Active Substance: AMIFAMPRIDINE PHOSPHATE
     Dosage: 20 MG, 4X/DAY
     Dates: start: 2019, end: 2019
  10. MIDODRINE [Concomitant]
     Active Substance: MIDODRINE
     Dosage: 10 MG, 3X/DAY
     Route: 048
  11. BREO ELLIPTA [Concomitant]
     Active Substance: FLUTICASONE FUROATE\VILANTEROL TRIFENATATE
     Dosage: 1 DOSAGE UNITS, 1X/DAY
  12. FIRDAPSE [Suspect]
     Active Substance: AMIFAMPRIDINE PHOSPHATE
     Dosage: 20 MG, 3X/DAY
     Dates: start: 2019, end: 2019
  13. XARELTO [Suspect]
     Active Substance: RIVAROXABAN
  14. PILOCARPINE. [Concomitant]
     Active Substance: PILOCARPINE
     Dosage: 5 MG, 3X/DAY
     Route: 048
  15. PANTOPRAZOLE [Concomitant]
     Active Substance: PANTOPRAZOLE
     Dosage: 20 MG, 1X/DAY
  16. FIRDAPSE [Suspect]
     Active Substance: AMIFAMPRIDINE PHOSPHATE
     Dosage: 10 MG, 8X/DAY
     Route: 048
  17. FERROUS SULFATE. [Concomitant]
     Active Substance: FERROUS SULFATE
     Dosage: UNK, 2X/DAY
  18. FERROUS SULFATE. [Concomitant]
     Active Substance: FERROUS SULFATE
     Dosage: 325 MG, 2X/DAY
  19. DULCOLAX NOS [Concomitant]
     Active Substance: BISACODYL OR DOCUSATE SODIUM
     Dosage: 10 MG
     Route: 054
  20. BIOTENE NOS [Suspect]
     Active Substance: CETYLPYRIDINIUM CHLORIDE OR SODIUM FLUORIDE OR SODIUM MONOFLUOROPHOSPHATE OR GLUCOSE OXIDASE\LACTOFERRIN\LACTOPEROXIDASE BOVINE\LYSOZYME
  21. FERROUS SULFATE. [Concomitant]
     Active Substance: FERROUS SULFATE
     Dosage: 325 MG, 1X/DAY
  22. TYLENOL [Concomitant]
     Active Substance: ACETAMINOPHEN
     Dosage: 650 MG, AS NEEDED
  23. MIRTAZAPINE. [Concomitant]
     Active Substance: MIRTAZAPINE
     Dosage: 15 MG, 1X/DAY AT BEDTIME
     Route: 048
     Dates: end: 201910
  24. REMERON [Concomitant]
     Active Substance: MIRTAZAPINE
     Dosage: 15 MG, 1X/DAY AT BEDTIME
  25. BREO ELLIPTA [Concomitant]
     Active Substance: FLUTICASONE FUROATE\VILANTEROL TRIFENATATE
     Dosage: UNK, 1X/DAY
  26. MULTIVITAMIN GUMMY [Concomitant]
     Dosage: 1 DOSAGE UNITS, 1X/DAY
  27. FIRDAPSE [Suspect]
     Active Substance: AMIFAMPRIDINE PHOSPHATE
     Dosage: 10 MG, 8X/DAY
     Route: 048
  28. VORICONAZOLE. [Suspect]
     Active Substance: VORICONAZOLE
  29. MIDODRINE [Concomitant]
     Active Substance: MIDODRINE
     Dosage: 10 MG, 2X/DAY

REACTIONS (50)
  - Bronchopulmonary aspergillosis [Recovered/Resolved]
  - Hypophosphataemia [Recovered/Resolved]
  - Hypomagnesaemia [Unknown]
  - Dysarthria [Recovering/Resolving]
  - Fatigue [Recovering/Resolving]
  - Acute respiratory failure [Unknown]
  - Dysphagia [Unknown]
  - General physical health deterioration [Unknown]
  - Back pain [Unknown]
  - Dyspnoea exertional [Unknown]
  - Death [Fatal]
  - Appendicitis [Unknown]
  - Unresponsive to stimuli [Unknown]
  - Leukocytosis [Recovered/Resolved]
  - Deep vein thrombosis [Unknown]
  - Pyrexia [Recovered/Resolved]
  - Fall [Recovered/Resolved]
  - Gait inability [Unknown]
  - Hypernatraemia [Unknown]
  - Diarrhoea [Unknown]
  - Eosinophilia [Recovered/Resolved]
  - Muscular weakness [Not Recovered/Not Resolved]
  - Pyuria [Unknown]
  - Hypercalcaemia [Recovered/Resolved]
  - Arthralgia [Recovered/Resolved]
  - Feeding disorder [Unknown]
  - Hypotension [Unknown]
  - Normocytic anaemia [Recovered/Resolved]
  - Gastrointestinal haemorrhage [Recovered/Resolved]
  - Asthenia [Recovering/Resolving]
  - Constipation [Recovering/Resolving]
  - Oropharyngeal pain [Recovering/Resolving]
  - Nausea [Unknown]
  - Sepsis [Recovered/Resolved]
  - Nephrolithiasis [Unknown]
  - Hypoxia [Unknown]
  - Septic shock [Unknown]
  - Urinary tract infection [Recovered/Resolved]
  - Night sweats [Recovering/Resolving]
  - Swollen tongue [Unknown]
  - Aphasia [Unknown]
  - Pneumonia aspiration [Recovered/Resolved]
  - Dehydration [Recovering/Resolving]
  - Acute myocardial infarction [Unknown]
  - Renal cyst [Unknown]
  - Acute kidney injury [Recovered/Resolved]
  - Vomiting [Unknown]
  - Failure to thrive [Recovering/Resolving]
  - Hyponatraemia [Recovered/Resolved]
  - Thrombocytosis [Unknown]

NARRATIVE: CASE EVENT DATE: 2019
